FAERS Safety Report 16047826 (Version 1)
Quarter: 2019Q1

REPORT INFORMATION
  Report Type: Report from Study
  Country: US (occurrence: US)
  Receive Date: 20190307
  Receipt Date: 20190307
  Transmission Date: 20190418
  Serious: Yes (Hospitalization)
  Sender: FDA-Public Use
  Company Number: US-ACTELION-A-US2018-183893

PATIENT
  Age: 64 Year
  Sex: Male

DRUGS (6)
  1. OPSUMIT [Suspect]
     Active Substance: MACITENTAN
     Indication: PULMONARY HYPERTENSION
     Dosage: 10 MG, QD
     Route: 048
     Dates: start: 20181220
  2. WARFARIN [Concomitant]
     Active Substance: WARFARIN
  3. BUMETANIDE. [Concomitant]
     Active Substance: BUMETANIDE
  4. DILTIAZEM. [Concomitant]
     Active Substance: DILTIAZEM
  5. ENOXAPARIN [Concomitant]
     Active Substance: ENOXAPARIN
  6. DIGOX [Concomitant]
     Active Substance: DIGOXIN

REACTIONS (2)
  - Visual impairment [Unknown]
  - Catheterisation cardiac [Unknown]

NARRATIVE: CASE EVENT DATE: 20190213
